FAERS Safety Report 9293148 (Version 1)
Quarter: 2013Q2

REPORT INFORMATION
  Report Type: Spontaneous
  Country: US (occurrence: None)
  Receive Date: 20130514
  Receipt Date: 20130514
  Transmission Date: 20140414
  Serious: Yes (Hospitalization, Other)
  Sender: FDA-Public Use
  Company Number: 2013P1005369

PATIENT
  Age: 4 Year
  Sex: Female

DRUGS (1)
  1. VALPROATE SODIUM [Suspect]

REACTIONS (5)
  - Respiratory distress [None]
  - Pancreatitis necrotising [None]
  - Pleural effusion [None]
  - Disseminated intravascular coagulation [None]
  - Ascites [None]
